FAERS Safety Report 8007132-X (Version None)
Quarter: 2011Q4

REPORT INFORMATION
  Report Type: 
  Country: None (occurrence: None)
  Receive Date: 20111221
  Receipt Date: 20111101
  Transmission Date: 20120403
  Serious: Yes (Other)
  Sender: FDA-Public Use
  Company Number: 2011AA001259

PATIENT
  Sex: Female

DRUGS (2)
  1. PHARMALGEN 9801) APIS MELLIFERA (PHARMALGEN (801) APIS MELIFERA) [Suspect]
     Dosage: 20 MICRGRAMS; SUBCUTANEOUS
     Route: 058
  2. ALLERGENS, INSECT VENOM [Concomitant]

REACTIONS (2)
  - VOMITING [None]
  - LOSS OF CONSCIOUSNESS [None]
